FAERS Safety Report 6801884-X (Version None)
Quarter: 2010Q2

REPORT INFORMATION
  Report Type: 
  Country: None (occurrence: None)
  Receive Date: 20100629
  Receipt Date: 20100622
  Transmission Date: 20101027
  Serious: Yes (Other)
  Sender: FDA-Public Use
  Company Number: DE-WYE-H15852210

PATIENT
  Age: 76 Year
  Sex: Female

DRUGS (4)
  1. PANTOPRAZOLE [Suspect]
     Dosage: UNKNOWN
  2. SIMVASTATIN [Suspect]
     Dosage: UNKNOWN
  3. LEVOTHYROXINE SODIUM [Suspect]
     Dosage: UNKNOWN
  4. HYDROCHLOROTHIAZIDE [Suspect]
     Dosage: UNKNOWN

REACTIONS (1)
  - WOUND TREATMENT [None]
